FAERS Safety Report 5399195-5 (Version None)
Quarter: 2007Q3

REPORT INFORMATION
  Report Type: 
  Country: None (occurrence: None)
  Receive Date: 20070727
  Receipt Date: 20070717
  Transmission Date: 20080115
  Serious: Yes (Other)
  Sender: FDA-Public Use
  Company Number: US-AVENTIS-200715265US

PATIENT
  Age: 47 Year
  Sex: Female

DRUGS (2)
  1. DOCETAXEL [Suspect]
     Indication: LEIOMYOSARCOMA METASTATIC
     Dosage: DOSE: 6 CYCLES
  2. GEMCITABINE HCL [Suspect]
     Indication: LEIOMYOSARCOMA METASTATIC
     Dosage: DOSE: 6 CYCLES

REACTIONS (3)
  - HAEMATOCRIT DECREASED [None]
  - HAEMOGLOBIN DECREASED [None]
  - PULMONARY ARTERIOVENOUS FISTULA [None]
